FAERS Safety Report 12416322 (Version 7)
Quarter: 2016Q3

REPORT INFORMATION
  Report Type: Spontaneous
  Country: KR (occurrence: KR)
  Receive Date: 20160530
  Receipt Date: 20160810
  Transmission Date: 20161109
  Serious: Yes (Hospitalization, Other)
  Sender: FDA-Public Use
  Company Number: KR-009507513-1605KOR000173

PATIENT
  Age: 27 Year
  Sex: Male
  Weight: 135.4 kg

DRUGS (61)
  1. EMEND (FOSAPREPITANT DIMEGLUMINE) [Suspect]
     Active Substance: FOSAPREPITANT DIMEGLUMINE
     Dosage: 150 MG, ONCE
     Route: 042
     Dates: start: 20160726, end: 20160726
  2. MABTHERA [Concomitant]
     Active Substance: RITUXIMAB
     Dosage: 941.2 MG, ONCE, CYCLE: 2
     Route: 042
     Dates: start: 20160503, end: 20160503
  3. ADRIAMYCIN [Concomitant]
     Active Substance: DOXORUBICIN HYDROCHLORIDE
     Indication: DIFFUSE LARGE B-CELL LYMPHOMA
     Dosage: 125.4 MG, ONCE, CYCLE: 1
     Route: 042
     Dates: start: 20160412, end: 20160412
  4. ADRIAMYCIN [Concomitant]
     Active Substance: DOXORUBICIN HYDROCHLORIDE
     Dosage: 126.4 MG, ONCE, CYCLE: 6
     Route: 042
     Dates: start: 20160726, end: 20160726
  5. VINCRISTINE SULFATE. [Concomitant]
     Active Substance: VINCRISTINE SULFATE
     Dosage: STRENGTH 1 MG/ML, 2 MG, ONCE, CYCLE: 4
     Route: 042
     Dates: start: 20160614, end: 20160614
  6. SOLONDO [Concomitant]
     Active Substance: PREDNISOLONE
     Dosage: 30 MG, BID
     Route: 048
     Dates: start: 20160412, end: 20160416
  7. ALOXI [Concomitant]
     Active Substance: PALONOSETRON HYDROCHLORIDE
     Indication: PROPHYLAXIS OF NAUSEA AND VOMITING
     Dosage: .25 MG, ONCE
     Route: 042
     Dates: start: 20160412, end: 20160412
  8. ALOXI [Concomitant]
     Active Substance: PALONOSETRON HYDROCHLORIDE
     Dosage: .25 MG, ONCE
     Route: 042
     Dates: start: 20160524, end: 20160524
  9. ALOXI [Concomitant]
     Active Substance: PALONOSETRON HYDROCHLORIDE
     Dosage: .25 MG, ONCE
     Route: 042
     Dates: start: 20160614, end: 20160614
  10. CARDIOXANE [Concomitant]
     Active Substance: DEXRAZOXANE HYDROCHLORIDE
     Indication: NEPHROPROTECTIVE THERAPY
     Dosage: 1264 MG, ONCE
     Route: 042
     Dates: start: 20160412, end: 20160412
  11. CARDIOXANE [Concomitant]
     Active Substance: DEXRAZOXANE HYDROCHLORIDE
     Dosage: 1264 MG, ONCE
     Route: 042
     Dates: start: 20160614, end: 20160614
  12. EMEND (FOSAPREPITANT DIMEGLUMINE) [Suspect]
     Active Substance: FOSAPREPITANT DIMEGLUMINE
     Indication: PROPHYLAXIS OF NAUSEA AND VOMITING
     Dosage: 150 MG, ONCE
     Route: 042
     Dates: start: 20160412, end: 20160412
  13. ENDOXAN [Concomitant]
     Active Substance: CYCLOPHOSPHAMIDE
     Dosage: 1897.4 MG, ONCE, CYCLE: 3
     Route: 042
     Dates: start: 20160524, end: 20160524
  14. VINCRISTINE SULFATE. [Concomitant]
     Active Substance: VINCRISTINE SULFATE
     Dosage: STRENGTH 1 MG/ML, 2 MG, ONCE, CYCLE: 5
     Route: 042
     Dates: start: 20160705, end: 20160705
  15. SOLONDO [Concomitant]
     Active Substance: PREDNISOLONE
     Indication: PROPHYLAXIS OF NAUSEA AND VOMITING
     Dosage: 40 MG, QD
     Route: 048
     Dates: start: 20160412, end: 20160416
  16. SOLONDO [Concomitant]
     Active Substance: PREDNISOLONE
     Dosage: 30 MG, BID
     Route: 048
     Dates: start: 20160524, end: 20160528
  17. SEPTRIN [Concomitant]
     Active Substance: SULFAMETHOXAZOLE\TRIMETHOPRIM
     Dosage: 1 DF, QD
     Route: 048
     Dates: start: 20160705, end: 20160711
  18. CRAVIT [Concomitant]
     Active Substance: LEVOFLOXACIN
     Dosage: 500 MG, QD
     Route: 048
     Dates: start: 20160503, end: 20160512
  19. ENDOXAN [Concomitant]
     Active Substance: CYCLOPHOSPHAMIDE
     Dosage: 1882.4 MG, ONCE, CYCLE: 2
     Route: 042
     Dates: start: 20160503, end: 20160503
  20. ADRIAMYCIN [Concomitant]
     Active Substance: DOXORUBICIN HYDROCHLORIDE
     Dosage: 126.4 MG, ONCE, CYCLE: 4
     Route: 042
     Dates: start: 20160614, end: 20160614
  21. ADRIAMYCIN [Concomitant]
     Active Substance: DOXORUBICIN HYDROCHLORIDE
     Dosage: 126.4 MG, ONCE, CYCLE: 5
     Route: 042
     Dates: start: 20160705, end: 20160705
  22. VINCRISTINE SULFATE. [Concomitant]
     Active Substance: VINCRISTINE SULFATE
     Dosage: STRENGTH 1 MG/ML, 2 MG, ONCE, CYCLE: 2
     Route: 042
     Dates: start: 20160503, end: 20160503
  23. VINCRISTINE SULFATE. [Concomitant]
     Active Substance: VINCRISTINE SULFATE
     Dosage: STRENGTH 1 MG/ML, 2 MG, ONCE, CYCLE: 6
     Route: 042
     Dates: start: 20160725, end: 20160725
  24. SOLONDO [Concomitant]
     Active Substance: PREDNISOLONE
     Dosage: 40 MG, QD
     Route: 048
     Dates: start: 20160614, end: 20160618
  25. ALOXI [Concomitant]
     Active Substance: PALONOSETRON HYDROCHLORIDE
     Dosage: .25 MG, ONCE
     Route: 042
     Dates: start: 20160503, end: 20160503
  26. CARDIOXANE [Concomitant]
     Active Substance: DEXRAZOXANE HYDROCHLORIDE
     Dosage: 1264 MG, ONCE
     Route: 042
     Dates: start: 20160726, end: 20160726
  27. SEPTRIN [Concomitant]
     Active Substance: SULFAMETHOXAZOLE\TRIMETHOPRIM
     Dosage: 1 TABLET, BID
     Route: 048
     Dates: start: 20160614, end: 20160620
  28. MABTHERA [Concomitant]
     Active Substance: RITUXIMAB
     Dosage: 948.7 MG. ONCE, CYCLE: 4
     Route: 042
     Dates: start: 20160614, end: 20160614
  29. ENDOXAN [Concomitant]
     Active Substance: CYCLOPHOSPHAMIDE
     Dosage: 1897.4 MG, ONCE, CYCLE: 4
     Route: 042
     Dates: start: 20160614, end: 20160614
  30. ENDOXAN [Concomitant]
     Active Substance: CYCLOPHOSPHAMIDE
     Dosage: 1897.4 MG, ONCE, CYCLE: 5
     Route: 042
     Dates: start: 20160705, end: 20160705
  31. SOLONDO [Concomitant]
     Active Substance: PREDNISOLONE
     Dosage: 30 MG, BID
     Route: 048
     Dates: start: 20160705, end: 20160709
  32. ALOXI [Concomitant]
     Active Substance: PALONOSETRON HYDROCHLORIDE
     Dosage: .25 MG, ONCE
     Route: 042
     Dates: start: 20160705, end: 20160705
  33. ALOXI [Concomitant]
     Active Substance: PALONOSETRON HYDROCHLORIDE
     Dosage: .25 MG, ONCE
     Route: 042
     Dates: start: 20160726, end: 20160726
  34. SEPTRIN [Concomitant]
     Active Substance: SULFAMETHOXAZOLE\TRIMETHOPRIM
     Dosage: 1 TABLET, BID
     Route: 048
     Dates: start: 20160524, end: 20160602
  35. CRAVIT [Concomitant]
     Active Substance: LEVOFLOXACIN
     Indication: INFECTION PROPHYLAXIS
     Dosage: 500 MG, QD
     Route: 048
     Dates: start: 20160412, end: 20160421
  36. EMEND (FOSAPREPITANT DIMEGLUMINE) [Suspect]
     Active Substance: FOSAPREPITANT DIMEGLUMINE
     Dosage: 150 MG, ONCE
     Route: 042
     Dates: start: 20160705, end: 20160705
  37. ADRIAMYCIN [Concomitant]
     Active Substance: DOXORUBICIN HYDROCHLORIDE
     Dosage: 25.4 MG, ONCE, CYCLE: 2
     Route: 042
     Dates: start: 20160503, end: 20160503
  38. ADRIAMYCIN [Concomitant]
     Active Substance: DOXORUBICIN HYDROCHLORIDE
     Dosage: 126.4 MG, ONCE, CYCLE: 3
     Route: 042
     Dates: start: 20160524, end: 20160524
  39. VINCRISTINE SULFATE. [Concomitant]
     Active Substance: VINCRISTINE SULFATE
     Indication: DIFFUSE LARGE B-CELL LYMPHOMA
     Dosage: STRENGTH 1 MG/ML, 2 MG, ONCE, CYCLE: 1
     Route: 042
     Dates: start: 20160412, end: 20160412
  40. SOLONDO [Concomitant]
     Active Substance: PREDNISOLONE
     Dosage: 30 MG, BID
     Route: 048
     Dates: start: 20160726, end: 20160730
  41. CARDIOXANE [Concomitant]
     Active Substance: DEXRAZOXANE HYDROCHLORIDE
     Dosage: 1264 MG, ONCE
     Route: 042
     Dates: start: 20160503, end: 20160503
  42. SEPTRIN [Concomitant]
     Active Substance: SULFAMETHOXAZOLE\TRIMETHOPRIM
     Indication: INFECTION PROPHYLAXIS
     Dosage: 1 TABLET, BID
     Route: 048
     Dates: start: 20160412, end: 20160418
  43. SEPTRIN [Concomitant]
     Active Substance: SULFAMETHOXAZOLE\TRIMETHOPRIM
     Dosage: 1 TABLET, BID
     Route: 048
     Dates: start: 20160503, end: 20160509
  44. EMEND (FOSAPREPITANT DIMEGLUMINE) [Suspect]
     Active Substance: FOSAPREPITANT DIMEGLUMINE
     Dosage: 150 MG, ONCE
     Route: 042
     Dates: start: 20160503, end: 20160503
  45. EMEND (FOSAPREPITANT DIMEGLUMINE) [Suspect]
     Active Substance: FOSAPREPITANT DIMEGLUMINE
     Dosage: 150 MG, ONCE
     Route: 042
     Dates: start: 20160524, end: 20160524
  46. MABTHERA [Concomitant]
     Active Substance: RITUXIMAB
     Dosage: 948.7 MG, ONCE, CYCLE: 5
     Route: 042
     Dates: start: 20160705, end: 20160705
  47. SOLONDO [Concomitant]
     Active Substance: PREDNISOLONE
     Dosage: 40 MG, QD
     Route: 048
     Dates: start: 20160524, end: 20160528
  48. SOLONDO [Concomitant]
     Active Substance: PREDNISOLONE
     Dosage: 40 MG, QD
     Route: 048
     Dates: start: 20160705, end: 20160709
  49. CARDIOXANE [Concomitant]
     Active Substance: DEXRAZOXANE HYDROCHLORIDE
     Dosage: 1264 MG, ONCE
     Route: 042
     Dates: start: 20160524, end: 20160524
  50. SEPTRIN [Concomitant]
     Active Substance: SULFAMETHOXAZOLE\TRIMETHOPRIM
     Dosage: 1 DF, BID
     Route: 048
     Dates: start: 20160726, end: 20160801
  51. EMEND (FOSAPREPITANT DIMEGLUMINE) [Suspect]
     Active Substance: FOSAPREPITANT DIMEGLUMINE
     Dosage: 150 MG, ONCE
     Route: 042
     Dates: start: 20160614, end: 20160614
  52. MABTHERA [Concomitant]
     Active Substance: RITUXIMAB
     Indication: DIFFUSE LARGE B-CELL LYMPHOMA
     Dosage: 941.2 MG, ONCE, CYCLE: 1
     Route: 042
     Dates: start: 20160412, end: 20160412
  53. MABTHERA [Concomitant]
     Active Substance: RITUXIMAB
     Dosage: 948.7 MG, ONCE, CYCLE: 3
     Route: 042
     Dates: start: 20160524, end: 20160524
  54. SOLONDO [Concomitant]
     Active Substance: PREDNISOLONE
     Dosage: 40 MG, QD
     Route: 048
     Dates: start: 20160503, end: 20160507
  55. SOLONDO [Concomitant]
     Active Substance: PREDNISOLONE
     Dosage: 30 MG, BID
     Route: 048
     Dates: start: 20160503, end: 20160507
  56. MABTHERA [Concomitant]
     Active Substance: RITUXIMAB
     Dosage: 948.7 MG, ONCE, CYCLE: 6
     Route: 042
     Dates: start: 20160726, end: 20160726
  57. ENDOXAN [Concomitant]
     Active Substance: CYCLOPHOSPHAMIDE
     Indication: DIFFUSE LARGE B-CELL LYMPHOMA
     Dosage: 1882.4 MG, ONCE, CYCLE: 1
     Route: 042
     Dates: start: 20160412, end: 20160412
  58. ENDOXAN [Concomitant]
     Active Substance: CYCLOPHOSPHAMIDE
     Dosage: 1897.4 MG, ONCE, CYCLE: 6
     Route: 042
     Dates: start: 20160726, end: 20160726
  59. VINCRISTINE SULFATE. [Concomitant]
     Active Substance: VINCRISTINE SULFATE
     Dosage: STRENGTH 1 MG/ML, 2 MG, ONCE, CYCLE: 3
     Route: 042
     Dates: start: 20160524, end: 20160524
  60. SOLONDO [Concomitant]
     Active Substance: PREDNISOLONE
     Dosage: 30 MG, BID
     Route: 048
     Dates: start: 20160614, end: 20160618
  61. SOLONDO [Concomitant]
     Active Substance: PREDNISOLONE
     Dosage: 40 MG, QD
     Route: 048
     Dates: start: 20160726, end: 20160730

REACTIONS (5)
  - Infusion related reaction [Recovered/Resolved]
  - Eczema [Recovering/Resolving]
  - Upper respiratory tract infection [Recovered/Resolved]
  - Pyrexia [Recovered/Resolved]
  - Neutropenia [Recovered/Resolved]

NARRATIVE: CASE EVENT DATE: 20160412
